FAERS Safety Report 5799870-4 (Version None)
Quarter: 2008Q2

REPORT INFORMATION
  Report Type: 
  Country: None (occurrence: None)
  Receive Date: 20080623
  Receipt Date: 20080513
  Transmission Date: 20081010
  Serious: Yes (Other)
  Sender: FDA-Public Use
  Company Number: US-WYE-H04364208

PATIENT
  Age: 36 Year
  Sex: Male

DRUGS (6)
  1. PRISTIQ [Suspect]
     Indication: ANXIETY
     Dosage: 50 MG 1X PER 1 DAY, ORAL
     Route: 048
     Dates: start: 20080429
  2. PRISTIQ [Suspect]
     Indication: DEPRESSION
     Dosage: 50 MG 1X PER 1 DAY, ORAL
     Route: 048
     Dates: start: 20080429
  3. ALCOHOL (ETHANOL,) [Suspect]
     Dosage: ^1 BEER^, ORAL
     Route: 048
     Dates: start: 20080511
  4. EFFEXOR XR [Suspect]
     Indication: DEPRESSION
     Dosage: 150 MG 1X PER 1 DAY, ORAL
     Route: 048
     Dates: start: 20080501
  5. WELLBUTRIN [Suspect]
     Dosage: 300 MG 1X PER 1 DAY, ORAL
     Route: 048
  6. XANAX [Suspect]
     Indication: ANXIETY
     Dosage: ^0.5 MG^, ORAL
     Route: 048
     Dates: start: 20080511

REACTIONS (3)
  - ANXIETY [None]
  - CHILLS [None]
  - DYSARTHRIA [None]
